FAERS Safety Report 7456550-7 (Version None)
Quarter: 2011Q2

REPORT INFORMATION
  Report Type: 
  Country: None (occurrence: None)
  Receive Date: 20110503
  Receipt Date: 20110419
  Transmission Date: 20111010
  Serious: Yes (Death, Life-Threatening, Hospitalization, Other)
  Sender: FDA-Public Use
  Company Number: DE-CELGENEUS-062-21880-10111502

PATIENT
  Age: 61 Year
  Sex: Male
  Weight: 61 kg

DRUGS (6)
  1. DARAPRIM [Concomitant]
     Route: 065
  2. LYRICA [Concomitant]
     Route: 065
  3. REVLIMID [Suspect]
     Indication: MULTIPLE MYELOMA
     Dosage: 15 MILLIGRAM
     Route: 048
     Dates: start: 20100812, end: 20100922
  4. DEXAMETHASONE [Concomitant]
     Indication: MULTIPLE MYELOMA
     Route: 065
     Dates: start: 20100812, end: 20100922
  5. DAPSON [Concomitant]
     Route: 065
  6. ZOLPIDEM [Concomitant]
     Route: 065

REACTIONS (2)
  - MULTIPLE MYELOMA [None]
  - STEVENS-JOHNSON SYNDROME [None]
